FAERS Safety Report 10065881 (Version 2)
Quarter: 2014Q2

REPORT INFORMATION
  Report Type: Spontaneous
  Country: US (occurrence: US)
  Receive Date: 20140408
  Receipt Date: 20140508
  Transmission Date: 20141212
  Serious: Yes (Other)
  Sender: FDA-Public Use
  Company Number: US-ABBVIE-14P-163-1219691-00

PATIENT
  Sex: Female

DRUGS (6)
  1. HUMIRA [Suspect]
     Indication: PSORIATIC ARTHROPATHY
     Dates: start: 2002, end: 2009
  2. METHOTREXATE [Suspect]
     Indication: PSORIATIC ARTHROPATHY
  3. MOTRIN [Suspect]
     Indication: PAIN
  4. TYLENOL [Suspect]
     Indication: PAIN
  5. ESTRADIOL [Concomitant]
     Indication: HORMONE THERAPY
  6. MULTIVITAMIN [Concomitant]
     Indication: VITAMIN SUPPLEMENTATION

REACTIONS (25)
  - Liver injury [Unknown]
  - Hepatic fibrosis [Unknown]
  - Abdominal pain upper [Recovered/Resolved]
  - Bile duct stone [Recovered/Resolved]
  - Gastric ulcer [Recovered/Resolved]
  - Uveitis [Not Recovered/Not Resolved]
  - Hypoacusis [Not Recovered/Not Resolved]
  - Post procedural complication [Recovered/Resolved]
  - Post procedural bile leak [Recovered/Resolved]
  - Vomiting [Recovered/Resolved]
  - Dyspnoea [Recovered/Resolved]
  - Impaired gastric emptying [Not Recovered/Not Resolved]
  - Vagus nerve disorder [Not Recovered/Not Resolved]
  - Gastric disorder [Not Recovered/Not Resolved]
  - Iritis [Not Recovered/Not Resolved]
  - Pustular psoriasis [Unknown]
  - Psoriasis [Unknown]
  - Rash macular [Not Recovered/Not Resolved]
  - Activities of daily living impaired [Unknown]
  - Pain [Not Recovered/Not Resolved]
  - Blister [Not Recovered/Not Resolved]
  - Vomiting [Not Recovered/Not Resolved]
  - Decreased appetite [Not Recovered/Not Resolved]
  - Diarrhoea [Not Recovered/Not Resolved]
  - Arthralgia [Not Recovered/Not Resolved]
